FAERS Safety Report 13076897 (Version 1)
Quarter: 2016Q4

REPORT INFORMATION
  Report Type: Spontaneous
  Country: CN (occurrence: CN)
  Receive Date: 20161230
  Receipt Date: 20161230
  Transmission Date: 20170207
  Serious: Yes (Other)
  Sender: FDA-Public Use
  Company Number: CN-PFIZER INC-2016599652

PATIENT
  Age: 43 Year
  Sex: Female
  Weight: 59 kg

DRUGS (3)
  1. ENDOXAN [Suspect]
     Active Substance: CYCLOPHOSPHAMIDE
     Indication: CHEMOTHERAPY
     Dosage: 1000 MG, 1X/DAY
     Route: 041
     Dates: start: 20160823, end: 20160823
  2. PHARMORUBICIN [Suspect]
     Active Substance: EPIRUBICIN
     Indication: CHEMOTHERAPY
     Dosage: 70 MG, 1X/DAY
     Route: 041
     Dates: start: 20160823, end: 20160823
  3. PHARMORUBICIN [Suspect]
     Active Substance: EPIRUBICIN
     Dosage: 60 MG, 1X/DAY
     Route: 041
     Dates: start: 20160824, end: 20160824

REACTIONS (2)
  - Liver function test abnormal [Recovering/Resolving]
  - Liver injury [Recovering/Resolving]

NARRATIVE: CASE EVENT DATE: 20160901
